FAERS Safety Report 20449949 (Version 1)
Quarter: 2022Q1

REPORT INFORMATION
  Report Type: Spontaneous
  Country: GB (occurrence: None)
  Receive Date: 20220209
  Receipt Date: 20220209
  Transmission Date: 20220423
  Serious: Yes (Other)
  Sender: FDA-Public Use
  Company Number: 2022A054359

PATIENT
  Age: 67 Year
  Sex: Female
  Weight: 71 kg

DRUGS (14)
  1. BUDESONIDE\FORMOTEROL\GLYCOPYRRONIUM [Suspect]
     Active Substance: BUDESONIDE\FORMOTEROL\GLYCOPYRRONIUM
     Dosage: 5MCG/DOSE / 7.2MCG/DOSE / 160MCG/DOSE
     Route: 055
     Dates: start: 20220117
  2. ADCAL [Concomitant]
     Route: 065
     Dates: start: 20211022
  3. CARBOCYSTEINE [Concomitant]
     Active Substance: CARBOCYSTEINE
     Route: 065
     Dates: start: 20220117
  4. CLONAZEPAM [Concomitant]
     Active Substance: CLONAZEPAM
     Dosage: 1 TWO TIMES A DAY
     Dates: start: 20211022
  5. DAPAGLIFLOZIN [Concomitant]
     Active Substance: DAPAGLIFLOZIN
     Route: 065
     Dates: start: 20211022
  6. DOXAZOSIN [Concomitant]
     Active Substance: DOXAZOSIN MESYLATE
     Dosage: 1 EVERY DAY
     Dates: start: 20211022
  7. DOXYCYCLINE [Concomitant]
     Active Substance: DOXYCYCLINE
     Dosage: TWO NOW THEN ONE DAILY RESCUE PACK
     Route: 065
     Dates: start: 20211220, end: 20211227
  8. ACLIDINIUM BROMIDE\FORMOTEROL FUMARATE [Concomitant]
     Active Substance: ACLIDINIUM BROMIDE\FORMOTEROL FUMARATE
     Dosage: 1 TWO TIMES A DAY
     Route: 055
     Dates: start: 20211022
  9. HUMULIN L [Concomitant]
     Active Substance: INSULIN HUMAN
     Dosage: USE AS DIRECTED
     Route: 065
     Dates: start: 20211022
  10. MORPHINE SULFATE [Concomitant]
     Active Substance: MORPHINE SULFATE
     Route: 065
     Dates: start: 20211022
  11. PREDNISOLONE [Concomitant]
     Active Substance: PREDNISOLONE
     Dosage: RESCUE PACK
     Route: 065
     Dates: start: 20211220, end: 20211226
  12. RAMIPRIL [Concomitant]
     Active Substance: RAMIPRIL
     Route: 065
     Dates: start: 20211022
  13. ALBUTEROL [Concomitant]
     Active Substance: ALBUTEROL
     Dosage: AS DIRECTED
     Route: 065
     Dates: start: 20220125
  14. ACETAMINOPHEN\CODEINE PHOSPHATE [Concomitant]
     Active Substance: ACETAMINOPHEN\CODEINE PHOSPHATE
     Dosage: TAKE 1 OR 2 4 TIMES/DAY
     Route: 065
     Dates: start: 20211213, end: 20211223

REACTIONS (2)
  - Oral discomfort [Recovered/Resolved]
  - Lip swelling [Recovered/Resolved]

NARRATIVE: CASE EVENT DATE: 20220127
